FAERS Safety Report 20199572 (Version 1)
Quarter: 2021Q4

REPORT INFORMATION
  Report Type: Spontaneous
  Country: US (occurrence: US)
  Receive Date: 20211217
  Receipt Date: 20211217
  Transmission Date: 20220303
  Serious: No
  Sender: FDA-Public Use
  Company Number: US-ORG100016242-2021000331

PATIENT
  Sex: Female
  Weight: 40 kg

DRUGS (1)
  1. EXPAREL [Suspect]
     Active Substance: BUPIVACAINE
     Dosage: 30 ML OF UNDILUTED EXPAREL
     Route: 030

REACTIONS (2)
  - Incorrect dose administered [Unknown]
  - No adverse event [Unknown]
